FAERS Safety Report 8338565-X (Version None)
Quarter: 2012Q2

REPORT INFORMATION
  Report Type: 
  Country: None (occurrence: None)
  Receive Date: 20120504
  Receipt Date: 20120423
  Transmission Date: 20120825
  Serious: Yes (Hospitalization)
  Sender: FDA-Public Use
  Company Number: GB-BAXTER-2012BAX004249

PATIENT
  Age: 61 Year
  Sex: Female

DRUGS (4)
  1. ERYTHROPOETIN [Concomitant]
     Route: 065
  2. DIANEAL PD4 GLUCOSE 2.27% W/V / 22.7 MG/ML [Suspect]
     Route: 033
     Dates: start: 20090105
  3. EXTRANEAL [Suspect]
     Route: 033
     Dates: start: 20090105
  4. VITAMIN D [Concomitant]
     Route: 065

REACTIONS (2)
  - PERITONEAL CLOUDY EFFLUENT [None]
  - BLOOD SODIUM DECREASED [None]
